FAERS Safety Report 20801256 (Version 2)
Quarter: 2022Q2

REPORT INFORMATION
  Report Type: Report from Study
  Country: US (occurrence: None)
  Receive Date: 20220509
  Receipt Date: 20220517
  Transmission Date: 20220721
  Serious: Yes (Hospitalization)
  Sender: FDA-Public Use
  Company Number: US-ROCHE-3090483

PATIENT
  Age: 72 Year
  Sex: Male
  Weight: 56.7 kg

DRUGS (19)
  1. COBIMETINIB [Suspect]
     Active Substance: COBIMETINIB
     Indication: Plasma cell myeloma
     Dosage: THE LAST DOSE OF COBIMETINIB ON 27JAN2021,
     Route: 048
     Dates: start: 20200220, end: 20210127
  2. DEXAMETHASONE [Suspect]
     Active Substance: DEXAMETHASONE
     Indication: Plasma cell myeloma
     Dosage: THE LAST DOSE OF DEXAMETHASONE ON 27JUL2021?(20 MG ON DAYS 1, 8, 15 AND 22) OF EACH 28-DAY CYCLE
     Route: 048
     Dates: start: 20200220
  3. DEXAMETHASONE [Suspect]
     Active Substance: DEXAMETHASONE
     Route: 065
     Dates: start: 20200220, end: 20210727
  4. IXAZOMIB [Suspect]
     Active Substance: IXAZOMIB
     Indication: Plasma cell myeloma
     Route: 048
     Dates: start: 20200416, end: 20210124
  5. POMALIDOMIDE [Suspect]
     Active Substance: POMALIDOMIDE
     Indication: Plasma cell myeloma
     Route: 048
     Dates: start: 20200416
  6. ONDANSETRON [Concomitant]
     Active Substance: ONDANSETRON
     Route: 048
     Dates: start: 20171003
  7. MAGNESIUM OXIDE [Concomitant]
     Active Substance: MAGNESIUM OXIDE
     Route: 048
     Dates: start: 20171003
  8. ASPIRIN [Concomitant]
     Active Substance: ASPIRIN
     Route: 048
     Dates: start: 20171003
  9. METFORMIN [Concomitant]
     Active Substance: METFORMIN HYDROCHLORIDE
     Dates: start: 20190802
  10. GLIPIZIDE [Concomitant]
     Active Substance: GLIPIZIDE
     Route: 048
     Dates: start: 20170825
  11. VALSARTAN [Concomitant]
     Active Substance: VALSARTAN
     Route: 048
     Dates: start: 20170825
  12. ACYCLOVIR [Concomitant]
     Active Substance: ACYCLOVIR
     Route: 048
     Dates: start: 20171003
  13. ACETAMINOPHEN [Concomitant]
     Active Substance: ACETAMINOPHEN
     Route: 048
     Dates: start: 20181102, end: 20210202
  14. LORAZEPAM [Concomitant]
     Active Substance: LORAZEPAM
     Route: 048
     Dates: start: 20180122, end: 20210202
  15. AMPICILLIN [Concomitant]
     Active Substance: AMPICILLIN
     Dates: start: 20201112, end: 20201117
  16. AMPICILLIN [Concomitant]
     Active Substance: AMPICILLIN
     Dates: start: 20201118, end: 20201126
  17. OMEPRAZOLE [Concomitant]
     Active Substance: OMEPRAZOLE
     Route: 048
     Dates: start: 20170822
  18. ATORVASTATIN [Concomitant]
     Active Substance: ATORVASTATIN
     Route: 048
     Dates: start: 20170918
  19. PHOSPHA 250 NEUTRAL [Concomitant]
     Active Substance: POTASSIUM PHOSPHATE, MONOBASIC\SODIUM PHOSPHATE, DIBASIC, ANHYDROUS\SODIUM PHOSPHATE, MONOBASIC, MON
     Route: 048
     Dates: start: 20171018

REACTIONS (3)
  - Cholecystitis [Recovered/Resolved]
  - Bacteraemia [Recovered/Resolved]
  - Cardiomyopathy [Recovered/Resolved]

NARRATIVE: CASE EVENT DATE: 20201110
